FAERS Safety Report 15955526 (Version 1)
Quarter: 2019Q1

REPORT INFORMATION
  Report Type: Spontaneous
  Country: US (occurrence: US)
  Receive Date: 20190213
  Receipt Date: 20190213
  Transmission Date: 20190417
  Serious: Yes (Other)
  Sender: FDA-Public Use
  Company Number: US-ASTELLAS-2019US004148

PATIENT
  Age: 67 Year
  Sex: Male

DRUGS (2)
  1. MYRBETRIQ [Suspect]
     Active Substance: MIRABEGRON
     Indication: POLLAKIURIA
     Route: 065
  2. MYRBETRIQ [Suspect]
     Active Substance: MIRABEGRON
     Indication: MICTURITION URGENCY
     Route: 065

REACTIONS (6)
  - Blood pressure fluctuation [Unknown]
  - Micturition urgency [Unknown]
  - Incorrect dose administered [Unknown]
  - Bladder cancer [Unknown]
  - Constipation [Unknown]
  - Pollakiuria [Unknown]
